FAERS Safety Report 7219971-3 (Version None)
Quarter: 2011Q1

REPORT INFORMATION
  Report Type: 
  Country: None (occurrence: None)
  Receive Date: 20110111
  Receipt Date: 20101227
  Transmission Date: 20110831
  Serious: Yes (Other)
  Sender: FDA-Public Use
  Company Number: US-ELI_LILLY_AND_COMPANY-US201011005746

PATIENT
  Sex: Male
  Weight: 59.864 kg

DRUGS (4)
  1. ABILIFY [Concomitant]
  2. STRATTERA [Suspect]
     Indication: ATTENTION DEFICIT/HYPERACTIVITY DISORDER
     Dosage: 50 MG, DAILY (1/D)
     Route: 048
  3. RISPERDAL [Concomitant]
  4. CLONIDINE [Concomitant]

REACTIONS (2)
  - OFF LABEL USE [None]
  - HOMICIDE [None]
